FAERS Safety Report 8136434-1 (Version None)
Quarter: 2012Q1

REPORT INFORMATION
  Report Type: 
  Country: None (occurrence: None)
  Receive Date: 20120103
  Receipt Date: 20110908
  Transmission Date: 20120608
  Serious: No
  Sender: FDA-Public Use
  Company Number: AE-2011-001077

PATIENT
  Sex: Male
  Weight: 105.6881 kg

DRUGS (6)
  1. MVI (MULTIVITAMINS) [Concomitant]
  2. INCIVEK [Suspect]
     Dosage: 2250 MG (750 MG,3 IN 1 D),ORAL
     Route: 048
     Dates: start: 20110812
  3. RIBAVIRIN [Concomitant]
  4. CELEXA [Concomitant]
  5. PRILOSEC [Concomitant]
  6. PEGINTERFERON (PEG-INTERFERON ALFA-2A) [Concomitant]

REACTIONS (4)
  - FEELING ABNORMAL [None]
  - FATIGUE [None]
  - ANAL PRURITUS [None]
  - IRRITABILITY [None]
